FAERS Safety Report 21399436 (Version 1)
Quarter: 2022Q4

REPORT INFORMATION
  Report Type: Spontaneous
  Country: DE (occurrence: DE)
  Receive Date: 20221001
  Receipt Date: 20221001
  Transmission Date: 20230113
  Serious: Yes (Hospitalization)
  Sender: FDA-Public Use
  Company Number: DE-ADRED-07722-01

PATIENT
  Age: 73 Year
  Sex: Male
  Weight: 68 kg

DRUGS (5)
  1. TORSEMIDE [Suspect]
     Active Substance: TORSEMIDE
     Indication: Product used for unknown indication
     Dosage: 10 MILLIGRAM DAILY; 10 MG, 1-0-0-0
  2. SPIRONOLACTONE [Suspect]
     Active Substance: SPIRONOLACTONE
     Indication: Product used for unknown indication
     Dosage: 50 MILLIGRAM DAILY; 50 MG, 1-0-0-0
  3. PROPRANOLOL [Concomitant]
     Active Substance: PROPRANOLOL HYDROCHLORIDE
     Indication: Product used for unknown indication
     Dosage: 30 MILLIGRAM DAILY; 10 MG, 1-1-1-0
  4. PANTOPRAZOLE SODIUM [Concomitant]
     Active Substance: PANTOPRAZOLE SODIUM
     Indication: Product used for unknown indication
     Dosage: 40 MILLIGRAM DAILY; 40 MG, 1-0-0-0
  5. Thiamin (Vitamin B1) [Concomitant]
     Indication: Product used for unknown indication
     Dosage: 200 MILLIGRAM DAILY; 200 MG, 1-0-0-0

REACTIONS (7)
  - Weight decreased [Unknown]
  - Diarrhoea [Unknown]
  - Cough [Unknown]
  - Dehydration [Unknown]
  - Fatigue [Unknown]
  - Haematochezia [Unknown]
  - Oedema peripheral [Unknown]
